FAERS Safety Report 17710399 (Version 2)
Quarter: 2020Q2

REPORT INFORMATION
  Report Type: Spontaneous
  Country: CH (occurrence: CH)
  Receive Date: 20200427
  Receipt Date: 20200428
  Transmission Date: 20200714
  Serious: Yes (Life-Threatening, Hospitalization, Other)
  Sender: FDA-Public Use
  Company Number: CH-MYLANLABS-2020M1041101

PATIENT
  Age: 21 Year
  Sex: Female

DRUGS (25)
  1. IBUPROFEN. [Suspect]
     Active Substance: IBUPROFEN
     Indication: PRODUCT USED FOR UNKNOWN INDICATION
     Dosage: 8 GRAM, TOTAL (IN TOTAL)
     Route: 048
     Dates: start: 20180301, end: 20180301
  2. VALVERDE SCHLAF [Concomitant]
     Dosage: 1 DOSAGE FORM, PRN (AS NECESSARY)
     Route: 048
  3. IMOVANE [Concomitant]
     Active Substance: ZOPICLONE
     Indication: PRODUCT USED FOR UNKNOWN INDICATION
     Dosage: 7.5 MG 1X1/DAY
     Route: 048
  4. BRUFEN [Suspect]
     Active Substance: IBUPROFEN
     Indication: PRODUCT USED FOR UNKNOWN INDICATION
     Dosage: 1 ANTI-XA IU/ML
     Route: 048
     Dates: start: 20180124, end: 20180124
  5. DICLOFENAC [Suspect]
     Active Substance: DICLOFENAC
     Indication: PRODUCT USED FOR UNKNOWN INDICATION
     Dosage: 2.5 GRAM, TOTAL (IN TOTAL)
     Route: 048
     Dates: start: 20180301, end: 20180301
  6. PRAZINE (PROMAZINE HYDROCHLORIDE) [Concomitant]
     Active Substance: PROMAZINE HYDROCHLORIDE
     Indication: PRODUCT USED FOR UNKNOWN INDICATION
     Dosage: 50 MG BIS 3X2/DAY
     Route: 048
  7. SIRDALUD [Concomitant]
     Active Substance: TIZANIDINE
     Indication: PRODUCT USED FOR UNKNOWN INDICATION
     Dosage: 2 MG BIS 3X1/DAY
     Route: 048
  8. NOZINAN                            /00038602/ [Concomitant]
     Active Substance: LEVOMEPROMAZINE MALEATE
     Indication: PRODUCT USED FOR UNKNOWN INDICATION
     Dosage: 25 MG UP TO 2X1/DAY
     Route: 048
  9. MAGNESIOCARD [Concomitant]
     Active Substance: MAGNESIUM ASPARTATE HYDROCHLORIDE
     Indication: PRODUCT USED FOR UNKNOWN INDICATION
     Dosage: 5 MILLIMOLE, BID
     Route: 048
  10. METFORMIN [Concomitant]
     Active Substance: METFORMIN HYDROCHLORIDE
     Indication: PRODUCT USED FOR UNKNOWN INDICATION
     Dosage: 1 ANTI-XA IU/ML, 1-0-1-0
     Route: 048
  11. IRFEN [Concomitant]
     Active Substance: IBUPROFEN
     Indication: PRODUCT USED FOR UNKNOWN INDICATION
     Dosage: 400 MG UP TO 3X1/DAY
     Route: 048
  12. PARACETAMOL [Suspect]
     Active Substance: ACETAMINOPHEN
     Indication: PRODUCT USED FOR UNKNOWN INDICATION
     Dosage: 18 GRAM, TOTAL (IN TOTAL)
     Route: 048
     Dates: start: 20180301, end: 20180301
  13. CLOPIN ECO [Suspect]
     Active Substance: CLOZAPINE
     Dosage: 100 MILLIGRAM, QD
     Route: 048
  14. ACETYLSALICYLIC ACID [Suspect]
     Active Substance: ASPIRIN
     Indication: PRODUCT USED FOR UNKNOWN INDICATION
     Dosage: 10 GRAM, TOTAL (IN TOTAL)
     Route: 048
     Dates: start: 20180301, end: 20180301
  15. CLOPIN ECO [Suspect]
     Active Substance: CLOZAPINE
     Indication: PRODUCT USED FOR UNKNOWN INDICATION
     Dosage: 5 TABLETS, 100 MG EACH
     Route: 048
     Dates: start: 20180124, end: 20180124
  16. JATROSOM                           /00071702/ [Suspect]
     Active Substance: TRANYLCYPROMINE SULFATE
     Dosage: 10 MG 3-0-0-0
     Route: 048
  17. PREMENS                            /09255101/ [Concomitant]
     Indication: PRODUCT USED FOR UNKNOWN INDICATION
     Dosage: 1 ANTI-XA IU/ML, 0-0-0-1
     Route: 048
  18. VITAMIN B6 [Concomitant]
     Active Substance: PYRIDOXINE HYDROCHLORIDE
     Indication: PRODUCT USED FOR UNKNOWN INDICATION
     Dosage: 1 ANTI-XA IU/ML, 1-0-0-0
     Route: 048
  19. TRANSIPEG (PEG3350\ELECTROLYTES) [Concomitant]
     Active Substance: POLYETHYLENE GLYCOL 3350\POTASSIUM CHLORIDE\SODIUM BICARBONATE\SODIUM CHLORIDE\SODIUM SULFATE ANHYDROUS
     Indication: PRODUCT USED FOR UNKNOWN INDICATION
     Dosage: 1 ANTI-XA IU/ML, 1-0-0
     Route: 048
  20. LAXOBERON [Concomitant]
     Active Substance: SODIUM PICOSULFATE
     Indication: PRODUCT USED FOR UNKNOWN INDICATION
     Dosage: 15 H, 0-0-15
     Route: 048
  21. ENTUMIN [Concomitant]
     Active Substance: CLOTHIAPINE
     Indication: PRODUCT USED FOR UNKNOWN INDICATION
     Dosage: 40 MG UP TO 3X1/DAY
     Route: 048
  22. DIPIPERON [Concomitant]
     Active Substance: PIPAMPERONE
     Indication: PRODUCT USED FOR UNKNOWN INDICATION
     Dosage: 40 MG UP TO 3X1/DAY
     Route: 048
  23. JATROSOM                           /00071702/ [Suspect]
     Active Substance: TRANYLCYPROMINE SULFATE
     Indication: PRODUCT USED FOR UNKNOWN INDICATION
     Dosage: 9 TABLETS OF 10 MG EACH WITH SUICIDAL INTENT
     Route: 048
     Dates: start: 20180124, end: 20180124
  24. CALCIUM-PHOSPHATBINDER [Concomitant]
     Indication: PRODUCT USED FOR UNKNOWN INDICATION
     Dosage: 500 MILLIGRAM, BID
     Route: 048
  25. DAFALGAN [Concomitant]
     Active Substance: ACETAMINOPHEN
     Indication: PRODUCT USED FOR UNKNOWN INDICATION
     Dosage: 500 MG UP TO 2X1/DAY
     Route: 048

REACTIONS (2)
  - Poisoning [Recovered/Resolved]
  - Nausea [Recovered/Resolved]

NARRATIVE: CASE EVENT DATE: 20180124
